FAERS Safety Report 4974455-8 (Version None)
Quarter: 2006Q2

REPORT INFORMATION
  Report Type: 
  Country: None (occurrence: None)
  Receive Date: 20060417
  Receipt Date: 20060413
  Transmission Date: 20061013
  Serious: Yes (Other)
  Sender: FDA-Public Use
  Company Number: US-BOEHRINGER INGELHEIM PHARMACEUTICALS, INC.-2006-BP-04243YA

PATIENT
  Age: 71 Year
  Sex: Male

DRUGS (9)
  1. TAMSULOSIN HCL [Suspect]
     Indication: PROSTATE EXAMINATION ABNORMAL
     Route: 065
     Dates: start: 20050101
  2. LIPITOR [Suspect]
     Indication: BLOOD CHOLESTEROL
     Route: 065
     Dates: start: 20050101
  3. ALLOPURINOL [Concomitant]
     Route: 065
  4. ATENOLOL [Concomitant]
     Route: 065
  5. ALL OTHER THERAPEUTIC PRODUCTS [Concomitant]
     Route: 065
  6. MVI(ERGOCALCIFEROL,FOLIC ACID,NICOTINAMIDE,PANTHENOL,THIAMINE HCL,RE ) [Concomitant]
     Route: 065
  7. VITAMIN B COMPLEX CAP [Concomitant]
     Route: 065
  8. L-LYSINE [Concomitant]
     Route: 065
  9. ASPIRIN [Concomitant]
     Route: 065

REACTIONS (7)
  - CATARACT [None]
  - MYALGIA [None]
  - OCULAR VASCULAR DISORDER [None]
  - OPTIC ISCHAEMIC NEUROPATHY [None]
  - PAIN IN EXTREMITY [None]
  - VISION BLURRED [None]
  - VISUAL ACUITY REDUCED [None]
